FAERS Safety Report 19646490 (Version 1)
Quarter: 2021Q3

REPORT INFORMATION
  Report Type: Report from Study
  Country: KR (occurrence: KR)
  Receive Date: 20210802
  Receipt Date: 20210802
  Transmission Date: 20211014
  Serious: Yes (Death)
  Sender: FDA-Public Use
  Company Number: KR-PFIZER INC-202100969755

PATIENT

DRUGS (11)
  1. CISPLATIN. [Suspect]
     Active Substance: CISPLATIN
     Dosage: 3 MG/KG, CYCLIC, DAY 0
  2. ETOPOSIDE. [Suspect]
     Active Substance: ETOPOSIDE
     Dosage: 2.5 MG/KG, CYCLIC, DAYS 0 TO 4
  3. CYCLOPHOSPHAMIDE. [Suspect]
     Active Substance: CYCLOPHOSPHAMIDE
     Dosage: 50 MG/KG, CYCLIC, DAYS 1 AND 2
  4. IFOSFAMIDE. [Suspect]
     Active Substance: IFOSFAMIDE
     Indication: ATYPICAL TERATOID/RHABDOID TUMOUR OF CNS
     Dosage: 60 MG/KG, CYCLIC, DAYS 0 TO 4
  5. IFOSFAMIDE. [Suspect]
     Active Substance: IFOSFAMIDE
     Dosage: 50 MG/KG, CYCLIC, DAYS 0 TO 4
  6. CISPLATIN. [Suspect]
     Active Substance: CISPLATIN
     Indication: ATYPICAL TERATOID/RHABDOID TUMOUR OF CNS
     Dosage: 3.5 MG/KG, CYCLIC, DAY 0
  7. VINCRISTINE SULFATE. [Suspect]
     Active Substance: VINCRISTINE SULFATE
     Indication: ATYPICAL TERATOID/RHABDOID TUMOUR OF CNS
     Dosage: 0.05 MG/KG, CYCLIC, DAYS 0, 7, AND 14
  8. VINCRISTINE SULFATE. [Suspect]
     Active Substance: VINCRISTINE SULFATE
     Dosage: 0.05 MG/KG, CYCLIC, DAYS 0 AND 7
  9. ETOPOSIDE. [Suspect]
     Active Substance: ETOPOSIDE
     Indication: ATYPICAL TERATOID/RHABDOID TUMOUR OF CNS
     Dosage: 2.5 MG/KG, CYCLIC, DAYS 0, 1, AND 2
  10. CARBOPLATIN. [Suspect]
     Active Substance: CARBOPLATIN
     Indication: ATYPICAL TERATOID/RHABDOID TUMOUR OF CNS
     Dosage: 10 MG/KG, CYCLIC, DAYS 0 AND 1
  11. CYCLOPHOSPHAMIDE. [Suspect]
     Active Substance: CYCLOPHOSPHAMIDE
     Indication: ATYPICAL TERATOID/RHABDOID TUMOUR OF CNS
     Dosage: 60 MG/KG, CYCLIC, DAYS 1 AND 2

REACTIONS (1)
  - Sepsis [Fatal]
